FAERS Safety Report 8486421-9 (Version None)
Quarter: 2012Q3

REPORT INFORMATION
  Report Type: 
  Country: None (occurrence: None)
  Receive Date: 20120703
  Receipt Date: 20120618
  Transmission Date: 20120928
  Serious: Yes (Other)
  Sender: FDA-Public Use
  Company Number: CHPA2012US013171

PATIENT
  Age: 44 Year
  Sex: Female

DRUGS (1)
  1. NICOTINE [Suspect]
     Indication: SMOKING CESSATION THERAPY
     Dosage: 21 MG, QD
     Route: 062
     Dates: start: 20110101, end: 20110101

REACTIONS (4)
  - PAIN IN EXTREMITY [None]
  - DEPRESSION [None]
  - HYPERTENSION [None]
  - NIGHTMARE [None]
